FAERS Safety Report 5896930-4 (Version None)
Quarter: 2008Q3

REPORT INFORMATION
  Report Type: 
  Country: None (occurrence: None)
  Receive Date: 20080924
  Receipt Date: 20080702
  Transmission Date: 20090109
  Serious: Yes (Hospitalization)
  Sender: FDA-Public Use
  Company Number: US-ASTRAZENECA-2008UW00797

PATIENT
  Sex: Male
  Weight: 116.6 kg

DRUGS (14)
  1. SEROQUEL [Suspect]
     Indication: DEPRESSION
     Dosage: 25 MG, 100 MG, 200 MG
     Route: 048
     Dates: start: 19991021, end: 20061109
  2. SEROQUEL [Suspect]
     Indication: SCHIZOPHRENIA, PARANOID TYPE
     Dosage: 25 MG, 100 MG, 200 MG
     Route: 048
     Dates: start: 19991021, end: 20061109
  3. SEROQUEL [Suspect]
     Indication: SLEEP DISORDER
     Dosage: 25 MG, 100 MG, 200 MG
     Route: 048
     Dates: start: 19991021, end: 20061109
  4. ABILIFY [Concomitant]
     Dosage: 15 MG AND 20 MG
     Dates: start: 20030101, end: 20050101
  5. CLOZARIL [Concomitant]
     Dates: start: 19990101
  6. GEODON [Concomitant]
     Dates: start: 20020101
  7. HALDOL [Concomitant]
     Dates: start: 20020101
  8. RISPERDAL [Concomitant]
     Dates: start: 20010101
  9. THORAZINE [Concomitant]
     Dates: start: 20070101
  10. TRILAFON [Concomitant]
  11. ZYPREXA [Concomitant]
     Dosage: 1999, 2007, 2008
  12. ZYPREXA [Concomitant]
     Dosage: 1999, 2007, 2008
  13. CYMBALTA [Concomitant]
     Dates: start: 20040101, end: 20080101
  14. CLONAZEPAM [Concomitant]
     Dates: start: 20040101, end: 20080101

REACTIONS (4)
  - ASTHENIA [None]
  - BLOOD PRESSURE ABNORMAL [None]
  - DIABETES MELLITUS [None]
  - GASTROOESOPHAGEAL REFLUX DISEASE [None]
